FAERS Safety Report 25934822 (Version 2)
Quarter: 2025Q4

REPORT INFORMATION
  Report Type: Spontaneous
  Country: EU (occurrence: EU)
  Receive Date: 20251017
  Receipt Date: 20251027
  Transmission Date: 20260117
  Serious: Yes (Other)
  Sender: TEVA
  Company Number: None

PATIENT
  Age: 48 Year
  Sex: Male
  Weight: 78.5 kg

DRUGS (62)
  1. PREGABALIN [Suspect]
     Active Substance: PREGABALIN
     Indication: Product used for unknown indication
     Dosage: 400 MG, DAILY
     Route: 065
     Dates: start: 20250528, end: 20250601
  2. PREGABALIN [Suspect]
     Active Substance: PREGABALIN
     Indication: Product used for unknown indication
     Dosage: 25 MG, DAILY
     Route: 065
     Dates: start: 20250507, end: 20250507
  3. PREGABALIN [Suspect]
     Active Substance: PREGABALIN
     Indication: Product used for unknown indication
     Dosage: 75 MG, DAILY
     Route: 065
     Dates: start: 20250508, end: 20250508
  4. PREGABALIN [Suspect]
     Active Substance: PREGABALIN
     Indication: Product used for unknown indication
     Dosage: 375 MG, DAILY
     Route: 065
     Dates: start: 20250813, end: 20250828
  5. PREGABALIN [Suspect]
     Active Substance: PREGABALIN
     Indication: Product used for unknown indication
     Dosage: 300 MG, DAILY
     Route: 065
     Dates: start: 20250520, end: 20250520
  6. PREGABALIN [Suspect]
     Active Substance: PREGABALIN
     Indication: Product used for unknown indication
     Dosage: 500 MG, DAILY
     Route: 065
     Dates: start: 20250603, end: 20250604
  7. PREGABALIN [Suspect]
     Active Substance: PREGABALIN
     Indication: Product used for unknown indication
     Dosage: 300 MG, DAILY
     Route: 065
     Dates: start: 20250829, end: 20250905
  8. PREGABALIN [Suspect]
     Active Substance: PREGABALIN
     Indication: Product used for unknown indication
     Dosage: 600 MG, DAILY
     Route: 065
     Dates: start: 20250605, end: 20250804
  9. PREGABALIN [Suspect]
     Active Substance: PREGABALIN
     Indication: Product used for unknown indication
     Dosage: 125 MG, DAILY
     Route: 065
     Dates: start: 20250509, end: 20250509
  10. PREGABALIN [Suspect]
     Active Substance: PREGABALIN
     Indication: Product used for unknown indication
     Dosage: 350 MG, DAILY
     Route: 065
     Dates: start: 20250522, end: 20250527
  11. PREGABALIN [Suspect]
     Active Substance: PREGABALIN
     Indication: Product used for unknown indication
     Dosage: 450 MG, DAILY
     Route: 065
     Dates: start: 20250808, end: 20250812
  12. PREGABALIN [Suspect]
     Active Substance: PREGABALIN
     Indication: Product used for unknown indication
     Dosage: 325 MG, DAILY
     Route: 065
     Dates: start: 20250521, end: 20250521
  13. PREGABALIN [Suspect]
     Active Substance: PREGABALIN
     Indication: Product used for unknown indication
     Dosage: 200 MG, DAILY
     Route: 065
     Dates: start: 20250513, end: 20250513
  14. PREGABALIN [Suspect]
     Active Substance: PREGABALIN
     Indication: Product used for unknown indication
     Dosage: 250 MG, DAILY
     Route: 065
     Dates: start: 20250515, end: 20250519
  15. PREGABALIN [Suspect]
     Active Substance: PREGABALIN
     Indication: Product used for unknown indication
     Dosage: 450 MG, DAILY
     Route: 065
     Dates: start: 20250602, end: 20250602
  16. PREGABALIN [Suspect]
     Active Substance: PREGABALIN
     Indication: Product used for unknown indication
     Dosage: 150 MG, DAILY
     Route: 065
     Dates: start: 20250510, end: 20250512
  17. PREGABALIN [Suspect]
     Active Substance: PREGABALIN
     Indication: Product used for unknown indication
     Dosage: 225 MG, DAILY
     Route: 065
     Dates: start: 20250514, end: 20250514
  18. PREGABALIN [Suspect]
     Active Substance: PREGABALIN
     Indication: Product used for unknown indication
     Dosage: 525 MG, DAILY
     Route: 065
     Dates: start: 20250805, end: 20250807
  19. NALTREXONE [Concomitant]
     Active Substance: NALTREXONE
     Indication: Product used for unknown indication
     Route: 065
     Dates: start: 20250507, end: 20250613
  20. KETAMINE HYDROCHLORIDE [Suspect]
     Active Substance: KETAMINE HYDROCHLORIDE
     Indication: Product used for unknown indication
     Route: 065
     Dates: start: 20250515, end: 20250515
  21. KETAMINE HYDROCHLORIDE [Suspect]
     Active Substance: KETAMINE HYDROCHLORIDE
     Indication: Product used for unknown indication
     Route: 065
     Dates: start: 20250714, end: 20250714
  22. KETAMINE HYDROCHLORIDE [Suspect]
     Active Substance: KETAMINE HYDROCHLORIDE
     Indication: Product used for unknown indication
     Route: 065
     Dates: start: 20250605, end: 20250605
  23. KETAMINE HYDROCHLORIDE [Suspect]
     Active Substance: KETAMINE HYDROCHLORIDE
     Indication: Product used for unknown indication
     Route: 065
     Dates: start: 20250617, end: 20250617
  24. KETAMINE HYDROCHLORIDE [Suspect]
     Active Substance: KETAMINE HYDROCHLORIDE
     Indication: Product used for unknown indication
     Route: 065
     Dates: start: 20250513, end: 20250513
  25. KETAMINE HYDROCHLORIDE [Suspect]
     Active Substance: KETAMINE HYDROCHLORIDE
     Indication: Product used for unknown indication
     Route: 065
     Dates: start: 20250731, end: 20250731
  26. KETAMINE HYDROCHLORIDE [Suspect]
     Active Substance: KETAMINE HYDROCHLORIDE
     Indication: Product used for unknown indication
     Route: 065
     Dates: start: 20250619, end: 20250619
  27. KETAMINE HYDROCHLORIDE [Suspect]
     Active Substance: KETAMINE HYDROCHLORIDE
     Indication: Product used for unknown indication
     Route: 065
     Dates: start: 20250707, end: 20250707
  28. KETAMINE HYDROCHLORIDE [Suspect]
     Active Substance: KETAMINE HYDROCHLORIDE
     Indication: Product used for unknown indication
     Route: 065
     Dates: start: 20250610, end: 20250610
  29. KETAMINE HYDROCHLORIDE [Suspect]
     Active Substance: KETAMINE HYDROCHLORIDE
     Indication: Product used for unknown indication
     Route: 065
     Dates: start: 20250522, end: 20250522
  30. KETAMINE HYDROCHLORIDE [Suspect]
     Active Substance: KETAMINE HYDROCHLORIDE
     Indication: Product used for unknown indication
     Route: 065
     Dates: start: 20250626, end: 20250626
  31. KETAMINE HYDROCHLORIDE [Suspect]
     Active Substance: KETAMINE HYDROCHLORIDE
     Indication: Product used for unknown indication
     Route: 065
     Dates: start: 20250527, end: 20250527
  32. KETAMINE HYDROCHLORIDE [Suspect]
     Active Substance: KETAMINE HYDROCHLORIDE
     Indication: Product used for unknown indication
     Route: 065
     Dates: start: 20250603, end: 20250603
  33. KETAMINE HYDROCHLORIDE [Suspect]
     Active Substance: KETAMINE HYDROCHLORIDE
     Indication: Product used for unknown indication
     Route: 065
     Dates: start: 20250624, end: 20250624
  34. KETAMINE HYDROCHLORIDE [Suspect]
     Active Substance: KETAMINE HYDROCHLORIDE
     Indication: Product used for unknown indication
     Route: 065
     Dates: start: 20250721, end: 20250721
  35. KETAMINE HYDROCHLORIDE [Suspect]
     Active Substance: KETAMINE HYDROCHLORIDE
     Indication: Product used for unknown indication
     Route: 065
     Dates: start: 20250728, end: 20250728
  36. KETAMINE HYDROCHLORIDE [Suspect]
     Active Substance: KETAMINE HYDROCHLORIDE
     Indication: Product used for unknown indication
     Route: 065
     Dates: start: 20250612, end: 20250612
  37. KETAMINE HYDROCHLORIDE [Suspect]
     Active Substance: KETAMINE HYDROCHLORIDE
     Indication: Product used for unknown indication
     Route: 065
     Dates: start: 20250520, end: 20250520
  38. ENOXAPARIN SODIUM [Concomitant]
     Active Substance: ENOXAPARIN SODIUM
     Indication: Product used for unknown indication
     Dosage: 40 MG, DAILY
     Route: 065
     Dates: start: 20250513, end: 20250609
  39. MELATONIN [Suspect]
     Active Substance: MELATONIN
     Indication: Product used for unknown indication
     Dosage: 2 MG, DAILY
     Route: 065
     Dates: start: 20250730, end: 20250905
  40. MELATONIN [Suspect]
     Active Substance: MELATONIN
     Indication: Product used for unknown indication
     Dosage: 4 MG, DAILY
     Route: 065
     Dates: start: 20250507, end: 20250729
  41. ESKETAMINE [Concomitant]
     Active Substance: ESKETAMINE
     Indication: Product used for unknown indication
     Dosage: 50 MG, QW
     Route: 042
  42. LORAZEPAM [Suspect]
     Active Substance: LORAZEPAM
     Indication: Product used for unknown indication
     Route: 065
     Dates: start: 20250610, end: 20250611
  43. LORAZEPAM [Suspect]
     Active Substance: LORAZEPAM
     Indication: Product used for unknown indication
     Route: 065
     Dates: start: 20250612, end: 20250614
  44. LORAZEPAM [Suspect]
     Active Substance: LORAZEPAM
     Indication: Product used for unknown indication
     Route: 065
     Dates: start: 20250516, end: 20250609
  45. LORAZEPAM [Suspect]
     Active Substance: LORAZEPAM
     Indication: Product used for unknown indication
     Route: 065
     Dates: start: 20250615, end: 20250618
  46. LORAZEPAM [Suspect]
     Active Substance: LORAZEPAM
     Indication: Product used for unknown indication
     Route: 065
     Dates: start: 20250619, end: 20250715
  47. LAVENDER OIL [Concomitant]
     Active Substance: LAVENDER OIL
     Indication: Product used for unknown indication
     Dosage: 160 MG, DAILY
     Route: 065
     Dates: start: 20250507, end: 20250905
  48. ARIPIPRAZOLE [Suspect]
     Active Substance: ARIPIPRAZOLE
     Indication: Product used for unknown indication
     Dosage: 2.5 MG, DAILY
     Route: 065
     Dates: start: 20250507, end: 20250516
  49. ARIPIPRAZOLE [Suspect]
     Active Substance: ARIPIPRAZOLE
     Indication: Product used for unknown indication
     Dosage: 5 MG, DAILY
     Route: 065
     Dates: start: 20250517, end: 20250905
  50. GINKGO [Suspect]
     Active Substance: GINKGO
     Indication: Product used for unknown indication
     Dosage: 240 MG, DAILY
     Route: 065
     Dates: start: 20250507, end: 20250618
  51. ASPIRIN [Concomitant]
     Active Substance: ASPIRIN
     Indication: Product used for unknown indication
     Route: 065
     Dates: start: 20250507, end: 20250905
  52. IVABRADINE [Suspect]
     Active Substance: IVABRADINE
     Indication: Product used for unknown indication
     Dosage: 5 MG, DAILY
     Route: 065
     Dates: start: 20250520, end: 20250715
  53. IVABRADINE [Suspect]
     Active Substance: IVABRADINE
     Indication: Product used for unknown indication
     Dosage: 2.5 MG, DAILY
     Route: 065
     Dates: start: 20250507, end: 20250519
  54. KETOTIFEN [Suspect]
     Active Substance: KETOTIFEN
     Indication: Product used for unknown indication
     Dosage: 2 MG, DAILY
     Route: 065
     Dates: start: 20250507, end: 20250715
  55. MIRTAZAPINE [Suspect]
     Active Substance: MIRTAZAPINE
     Indication: Product used for unknown indication
     Dosage: 30 MG, DAILY
     Route: 065
     Dates: start: 20250811, end: 20250905
  56. MIRTAZAPINE [Suspect]
     Active Substance: MIRTAZAPINE
     Indication: Product used for unknown indication
     Dosage: 45 MG, DAILY
     Route: 065
     Dates: start: 20250507, end: 20250810
  57. VENLAFAXINE [Suspect]
     Active Substance: VENLAFAXINE HYDROCHLORIDE
     Indication: Product used for unknown indication
     Dosage: 75 MG, DAILY
     Route: 065
     Dates: start: 20250508, end: 20250514
  58. VENLAFAXINE [Suspect]
     Active Substance: VENLAFAXINE HYDROCHLORIDE
     Indication: Product used for unknown indication
     Dosage: 150 MG, DAILY
     Route: 065
     Dates: start: 20250815, end: 20250905
  59. VENLAFAXINE [Suspect]
     Active Substance: VENLAFAXINE HYDROCHLORIDE
     Indication: Product used for unknown indication
     Dosage: 187.5 MG, DAILY
     Route: 065
     Dates: start: 20250730, end: 20250814
  60. VENLAFAXINE [Suspect]
     Active Substance: VENLAFAXINE HYDROCHLORIDE
     Indication: Product used for unknown indication
     Dosage: 150 MG, DAILY
     Route: 065
     Dates: start: 20250515, end: 20250729
  61. XYZAL [Suspect]
     Active Substance: LEVOCETIRIZINE DIHYDROCHLORIDE
     Indication: Product used for unknown indication
     Route: 065
     Dates: start: 20250507, end: 20250905
  62. Daflon [Concomitant]
     Indication: Product used for unknown indication
     Route: 065
     Dates: start: 20250507, end: 20250905

REACTIONS (7)
  - Urinary retention [Recovering/Resolving]
  - Urinary hesitation [Recovering/Resolving]
  - Constipation [Recovering/Resolving]
  - Functional gastrointestinal disorder [Recovering/Resolving]
  - Underdose [Unknown]
  - Weight increased [Not Recovered/Not Resolved]
  - Drug level decreased [Recovered/Resolved]

NARRATIVE: CASE EVENT DATE: 20250507
